FAERS Safety Report 12136790 (Version 2)
Quarter: 2016Q1

REPORT INFORMATION
  Report Type: Report from Study
  Country: ES (occurrence: ES)
  Receive Date: 20160302
  Receipt Date: 20160302
  Transmission Date: 20160526
  Serious: Yes (Hospitalization)
  Sender: FDA-Public Use
  Company Number: ES-SA-2016SA036413

PATIENT
  Age: 66 Year
  Sex: Female

DRUGS (6)
  1. HIDROFEROL [Concomitant]
     Active Substance: CALCIFEDIOL
     Dosage: 1 AMP BEBIDA CADA 3 SEMANAS?STRENGTH: 0.266MG
     Route: 048
     Dates: start: 20140228
  2. ACFOL [Concomitant]
     Active Substance: FOLIC ACID
     Dosage: 0-0-2 LOS MIERCOLES Y JUEVES?STRENGTH: 5MG
     Route: 048
     Dates: start: 20140228, end: 20141117
  3. DACORTIN [Concomitant]
     Active Substance: PREDNISONE
     Dosage: STRENGTH: 2.5MG
     Route: 048
     Dates: start: 20140228
  4. METHOTREXATE (METHOTREXATE SODIUM) [Suspect]
     Active Substance: METHOTREXATE SODIUM
     Indication: RHEUMATOID ARTHRITIS
     Dosage: 1-1-1 LOS MARTES
     Route: 048
     Dates: start: 20140228, end: 20141117
  5. ARAVA [Suspect]
     Active Substance: LEFLUNOMIDE
     Indication: RHEUMATOID ARTHRITIS
     Dosage: 1 CP
     Route: 048
     Dates: start: 20140228, end: 20141117
  6. CALCIUM [Concomitant]
     Active Substance: CALCIUM
     Dosage: 1-0-1?STRENGTH: 500MG
     Route: 048
     Dates: start: 20140228

REACTIONS (4)
  - Gastric ulcer [Recovering/Resolving]
  - Chronic gastritis [Recovering/Resolving]
  - Hepatitis acute [Recovering/Resolving]
  - Anaemia macrocytic [Recovering/Resolving]

NARRATIVE: CASE EVENT DATE: 20141117
